FAERS Safety Report 8820860 (Version 4)
Quarter: 2012Q4

REPORT INFORMATION
  Report Type: Report from Study
  Country: AU (occurrence: AU)
  Receive Date: 20121002
  Receipt Date: 20121121
  Transmission Date: 20130627
  Serious: Yes (Hospitalization, Other)
  Sender: FDA-Public Use
  Company Number: AU-ROCHE-1138820

PATIENT
  Age: 83 Year
  Sex: Male

DRUGS (15)
  1. VEMURAFENIB [Suspect]
     Indication: MALIGNANT MELANOMA
     Route: 048
     Dates: start: 20120830, end: 20120920
  2. VEMURAFENIB [Suspect]
     Route: 048
     Dates: start: 20120926, end: 20121109
  3. MOVICOL [Concomitant]
     Dosage: 1-2 sachets
     Route: 048
  4. MOVICOL [Concomitant]
     Dosage: dose reduecd
     Route: 048
     Dates: start: 20120927
  5. COLOXYL WITH SENNA [Concomitant]
     Dosage: dose reportad as 2
     Route: 048
  6. COLOXYL WITH SENNA [Concomitant]
     Dosage: dose reduced
     Route: 048
  7. CLOPIDOGREL [Concomitant]
     Route: 048
  8. PANTOPRAZOLE [Concomitant]
     Route: 048
  9. DIGOXIN [Concomitant]
     Route: 048
  10. FERRO [Concomitant]
     Dosage: dose reported to 1
     Route: 048
  11. METOCLOPRAMIDE [Concomitant]
     Route: 048
  12. PARACETAMOL [Concomitant]
     Route: 048
  13. TEMAZEPAM [Concomitant]
     Route: 048
  14. BION TEARS [Concomitant]
     Dosage: dose reported as 1
     Route: 061
  15. ALLOPURINOL [Concomitant]
     Route: 048

REACTIONS (8)
  - Diarrhoea [Recovering/Resolving]
  - Dehydration [Unknown]
  - Rash macular [Not Recovered/Not Resolved]
  - Malaise [Unknown]
  - Renal failure acute [Unknown]
  - Hyponatraemia [Unknown]
  - Weight decreased [Recovering/Resolving]
  - Fatigue [Unknown]
